FAERS Safety Report 17403987 (Version 8)
Quarter: 2021Q2

REPORT INFORMATION
  Report Type: Report from Study
  Country: JP (occurrence: JP)
  Receive Date: 20200211
  Receipt Date: 20210525
  Transmission Date: 20210716
  Serious: Yes (Death, Life-Threatening, Hospitalization, Other)
  Sender: FDA-Public Use
  Company Number: JP-BRISTOL-MYERS SQUIBB COMPANY-BMS-2019-005547

PATIENT
  Age: 78 Year
  Sex: Male
  Weight: 49 kg

DRUGS (11)
  1. IPILIMUMAB [Suspect]
     Active Substance: IPILIMUMAB
     Indication: METASTATIC RENAL CELL CARCINOMA
     Dosage: 50 MILLIGRAM, Q3WK
     Route: 041
     Dates: start: 20180913, end: 20181119
  2. KENKETU GLOVENIN?I [Concomitant]
     Active Substance: HUMAN IMMUNOGLOBULIN G
     Indication: PRODUCT USED FOR UNKNOWN INDICATION
     Dosage: 5 GRAM, QD
     Route: 042
     Dates: start: 20200224, end: 20200225
  3. MEROPEN [MEROPENEM TRIHYDRATE] [Concomitant]
     Active Substance: MEROPENEM
     Indication: PRODUCT USED FOR UNKNOWN INDICATION
     Dosage: 0.5 GRAM, Q8H
     Route: 042
     Dates: start: 20200224, end: 20200229
  4. ONOACT [Suspect]
     Active Substance: LANDIOLOL HYDROCHLORIDE
     Indication: PRODUCT USED FOR UNKNOWN INDICATION
     Dosage: 200 MILLIGRAM, Q12H
     Route: 041
     Dates: start: 20200214, end: 20200217
  5. ANAEMETRO [Concomitant]
     Active Substance: METRONIDAZOLE
     Indication: PRODUCT USED FOR UNKNOWN INDICATION
     Dosage: 500 MILLIGRAM, Q12H
     Route: 042
     Dates: start: 20200212, end: 20200229
  6. NIVOLUMAB [Suspect]
     Active Substance: NIVOLUMAB
     Indication: METASTATIC RENAL CELL CARCINOMA
     Dosage: 240 MILLIGRAM, Q3WK
     Route: 041
     Dates: start: 20180913, end: 20181119
  7. VANCOMYCIN [Concomitant]
     Active Substance: VANCOMYCIN
     Indication: PRODUCT USED FOR UNKNOWN INDICATION
     Dosage: 500 MILLIGRAM, QD
     Route: 042
     Dates: start: 20200223, end: 20200229
  8. RECOMODULIN [Concomitant]
     Active Substance: THROMBOMODULIN ALFA
     Indication: PRODUCT USED FOR UNKNOWN INDICATION
     Dosage: 1.5 VIAL, EVERYDAY
     Route: 042
     Dates: start: 20200225, end: 20200229
  9. NIVOLUMAB [Suspect]
     Active Substance: NIVOLUMAB
     Dosage: 240 MILLIGRAM
     Route: 041
     Dates: start: 20181206, end: 20200207
  10. ONOACT [Suspect]
     Active Substance: LANDIOLOL HYDROCHLORIDE
     Dosage: 200 MILLIGRAM, Q12H
     Route: 041
     Dates: start: 20200226, end: 20200229
  11. ZOSYN [Concomitant]
     Active Substance: PIPERACILLIN SODIUM\TAZOBACTAM SODIUM
     Indication: PRODUCT USED FOR UNKNOWN INDICATION
     Dosage: 4.5 GRAM, Q8H
     Route: 042
     Dates: start: 20200212, end: 20200229

REACTIONS (15)
  - Prostatic abscess [Fatal]
  - Disseminated intravascular coagulation [Fatal]
  - Subdiaphragmatic abscess [Fatal]
  - Diverticular perforation [Fatal]
  - Renal impairment [Not Recovered/Not Resolved]
  - Ascites [Fatal]
  - Large intestine perforation [Fatal]
  - Sepsis [Fatal]
  - Cellulitis [Fatal]
  - General physical health deterioration [Not Recovered/Not Resolved]
  - Prescribed overdose [Unknown]
  - Peritonitis [Fatal]
  - Blood pressure decreased [Not Recovered/Not Resolved]
  - Hyperglycaemia [Recovering/Resolving]
  - Rash [Recovered/Resolved]

NARRATIVE: CASE EVENT DATE: 20181012
